FAERS Safety Report 8101701-4 (Version None)
Quarter: 2012Q1

REPORT INFORMATION
  Report Type: 
  Country: None (occurrence: None)
  Receive Date: 20120131
  Receipt Date: 20120125
  Transmission Date: 20120608
  Serious: Yes (Hospitalization, Other)
  Sender: FDA-Public Use
  Company Number: JP-PFIZER INC-2011308865

PATIENT
  Age: 55 Year
  Sex: Male

DRUGS (4)
  1. FLUOROURACIL [Suspect]
     Route: 041
  2. LEVOLEUCOVORIN CALCIUM [Suspect]
     Indication: COLON CANCER
     Route: 041
  3. FLUOROURACIL [Suspect]
     Indication: COLON CANCER
     Route: 040
  4. IRINOTECAN HCL [Suspect]
     Indication: COLON CANCER
     Route: 041

REACTIONS (1)
  - LEUKOENCEPHALOPATHY [None]
